FAERS Safety Report 25581833 (Version 2)
Quarter: 2025Q3

REPORT INFORMATION
  Report Type: Spontaneous
  Country: US (occurrence: US)
  Receive Date: 20250719
  Receipt Date: 20250821
  Transmission Date: 20251021
  Serious: No
  Sender: AMGEN
  Company Number: US-PFIZER INC-202500144737

PATIENT
  Age: 68 Year
  Sex: Female

DRUGS (1)
  1. ENBREL [Suspect]
     Active Substance: ETANERCEPT
     Indication: Rheumatoid arthritis
     Dosage: 50 MG, WEEKLY
     Route: 058
     Dates: start: 202104

REACTIONS (1)
  - Condition aggravated [Unknown]
